FAERS Safety Report 8493144-9 (Version None)
Quarter: 2012Q3

REPORT INFORMATION
  Report Type: 
  Country: None (occurrence: None)
  Receive Date: 20120706
  Receipt Date: 20120628
  Transmission Date: 20120928
  Serious: Yes (Other)
  Sender: FDA-Public Use
  Company Number: FR-JNJFOC-20120508149

PATIENT
  Age: 55 Year
  Sex: Male

DRUGS (17)
  1. ONDANSETRON [Concomitant]
     Route: 065
  2. FOLINIC ACID [Concomitant]
     Route: 065
  3. METOCLOPRAMIDE [Suspect]
     Indication: PRODUCT USED FOR UNKNOWN INDICATION
     Route: 065
  4. FLUOROURACIL [Concomitant]
     Route: 065
  5. CETIRIZINE HYDROCHLORIDE [Suspect]
     Route: 065
  6. MASITINIB (CHEMOTHERAPY) [Suspect]
     Indication: PRODUCT USED FOR UNKNOWN INDICATION
     Route: 048
  7. OXYCODONE HCL [Suspect]
     Indication: PRODUCT USED FOR UNKNOWN INDICATION
     Route: 065
  8. FOLINIC ACID [Concomitant]
     Route: 065
  9. CETIRIZINE HYDROCHLORIDE [Suspect]
     Indication: PRODUCT USED FOR UNKNOWN INDICATION
     Route: 065
  10. ZYRTEC [Suspect]
     Route: 065
  11. OXYCODONE HCL [Suspect]
     Route: 065
  12. ELOXATIN [Concomitant]
     Route: 065
  13. FLUOROURACIL [Concomitant]
     Route: 065
  14. POLYETHYLENE GLYCOL [Concomitant]
     Route: 065
  15. ZOLPIDEM [Concomitant]
     Route: 065
  16. ZYRTEC [Suspect]
     Indication: PRODUCT USED FOR UNKNOWN INDICATION
     Route: 065
  17. ONDANSETRON [Concomitant]
     Route: 065

REACTIONS (1)
  - STEVENS-JOHNSON SYNDROME [None]
